FAERS Safety Report 9784959 (Version 2)
Quarter: 2013Q4

REPORT INFORMATION
  Report Type: Spontaneous
  Country: FR (occurrence: FR)
  Receive Date: 20131227
  Receipt Date: 20131227
  Transmission Date: 20140711
  Serious: Yes (Hospitalization)
  Sender: FDA-Public Use
  Company Number: FR-BRISTOL-MYERS SQUIBB COMPANY-19795574

PATIENT
  Age: 32 Year
  Sex: Female
  Weight: 55 kg

DRUGS (2)
  1. ABILIFY [Suspect]
     Dosage: DOSE REDUCED TO 10MG
     Route: 048
     Dates: start: 201210, end: 201305
  2. DEPAMIDE [Concomitant]
     Indication: THYMUS DISORDER
     Dosage: TAB
     Route: 048
     Dates: start: 201210, end: 201305

REACTIONS (5)
  - Akathisia [Recovered/Resolved]
  - Tension [Recovered/Resolved]
  - Nervousness [Recovered/Resolved]
  - Anxiety [Recovered/Resolved]
  - Off label use [Unknown]
